FAERS Safety Report 17160846 (Version 4)
Quarter: 2025Q2

REPORT INFORMATION
  Report Type: Spontaneous
  Country: DE (occurrence: DE)
  Receive Date: 20191216
  Receipt Date: 20250505
  Transmission Date: 20250717
  Serious: Yes (Other)
  Sender: MYLAN
  Company Number: DE-EMA-DD-20190805-GONUGUNTLA_N1-163831

PATIENT
  Age: 43 Year
  Sex: Female
  Weight: 123 kg

DRUGS (116)
  1. METHOTREXATE SODIUM [Suspect]
     Active Substance: METHOTREXATE SODIUM
     Indication: Product used for unknown indication
     Dosage: UNK UNK, QW
     Route: 065
     Dates: start: 2013
  2. METHOTREXATE SODIUM [Suspect]
     Active Substance: METHOTREXATE SODIUM
     Dosage: UNK UNK, QW
     Dates: start: 2013
  3. METHOTREXATE SODIUM [Suspect]
     Active Substance: METHOTREXATE SODIUM
     Dosage: UNK UNK, QW
     Dates: start: 2013
  4. METHOTREXATE SODIUM [Suspect]
     Active Substance: METHOTREXATE SODIUM
     Dosage: UNK UNK, QW
     Route: 065
     Dates: start: 2013
  5. METHOTREXATE SODIUM [Suspect]
     Active Substance: METHOTREXATE SODIUM
     Dosage: 1 DOSAGE FORM, QW
     Route: 065
     Dates: start: 2013
  6. METHOTREXATE SODIUM [Suspect]
     Active Substance: METHOTREXATE SODIUM
     Dosage: 1 DOSAGE FORM, QW
     Dates: start: 2013
  7. METHOTREXATE SODIUM [Suspect]
     Active Substance: METHOTREXATE SODIUM
     Dosage: 1 DOSAGE FORM, QW
     Dates: start: 2013
  8. METHOTREXATE SODIUM [Suspect]
     Active Substance: METHOTREXATE SODIUM
     Dosage: 1 DOSAGE FORM, QW
     Route: 065
     Dates: start: 2013
  9. ESCITALOPRAM [Suspect]
     Active Substance: ESCITALOPRAM OXALATE
     Indication: Product used for unknown indication
     Route: 065
  10. ESCITALOPRAM [Suspect]
     Active Substance: ESCITALOPRAM OXALATE
  11. ESCITALOPRAM [Suspect]
     Active Substance: ESCITALOPRAM OXALATE
  12. ESCITALOPRAM [Suspect]
     Active Substance: ESCITALOPRAM OXALATE
     Route: 065
  13. ESCITALOPRAM [Suspect]
     Active Substance: ESCITALOPRAM OXALATE
     Route: 065
  14. ESCITALOPRAM [Suspect]
     Active Substance: ESCITALOPRAM OXALATE
  15. ESCITALOPRAM [Suspect]
     Active Substance: ESCITALOPRAM OXALATE
  16. ESCITALOPRAM [Suspect]
     Active Substance: ESCITALOPRAM OXALATE
     Route: 065
  17. METOPROLOL [Suspect]
     Active Substance: METOPROLOL
     Indication: Product used for unknown indication
     Route: 065
  18. METOPROLOL [Suspect]
     Active Substance: METOPROLOL
  19. METOPROLOL [Suspect]
     Active Substance: METOPROLOL
  20. METOPROLOL [Suspect]
     Active Substance: METOPROLOL
     Route: 065
  21. METOPROLOL [Suspect]
     Active Substance: METOPROLOL
     Route: 065
  22. METOPROLOL [Suspect]
     Active Substance: METOPROLOL
  23. METOPROLOL [Suspect]
     Active Substance: METOPROLOL
  24. METOPROLOL [Suspect]
     Active Substance: METOPROLOL
     Route: 065
  25. PANTOZOL [Suspect]
     Active Substance: PANTOPRAZOLE SODIUM
     Indication: Product used for unknown indication
  26. PANTOZOL [Suspect]
     Active Substance: PANTOPRAZOLE SODIUM
     Route: 065
  27. PANTOZOL [Suspect]
     Active Substance: PANTOPRAZOLE SODIUM
     Route: 065
  28. PANTOZOL [Suspect]
     Active Substance: PANTOPRAZOLE SODIUM
  29. PANTOZOL [Suspect]
     Active Substance: PANTOPRAZOLE SODIUM
     Route: 065
  30. PANTOZOL [Suspect]
     Active Substance: PANTOPRAZOLE SODIUM
     Route: 065
  31. PANTOZOL [Suspect]
     Active Substance: PANTOPRAZOLE SODIUM
  32. PANTOZOL [Suspect]
     Active Substance: PANTOPRAZOLE SODIUM
  33. PANTOZOL [Suspect]
     Active Substance: PANTOPRAZOLE SODIUM
  34. PANTOZOL [Suspect]
     Active Substance: PANTOPRAZOLE SODIUM
     Route: 065
  35. PANTOZOL [Suspect]
     Active Substance: PANTOPRAZOLE SODIUM
  36. PANTOZOL [Suspect]
     Active Substance: PANTOPRAZOLE SODIUM
     Route: 065
  37. IBUPROFEN [Suspect]
     Active Substance: IBUPROFEN
     Indication: Product used for unknown indication
     Route: 065
  38. IBUPROFEN [Suspect]
     Active Substance: IBUPROFEN
  39. IBUPROFEN [Suspect]
     Active Substance: IBUPROFEN
  40. IBUPROFEN [Suspect]
     Active Substance: IBUPROFEN
     Route: 065
  41. IBUPROFEN [Suspect]
     Active Substance: IBUPROFEN
     Route: 065
  42. IBUPROFEN [Suspect]
     Active Substance: IBUPROFEN
  43. IBUPROFEN [Suspect]
     Active Substance: IBUPROFEN
  44. IBUPROFEN [Suspect]
     Active Substance: IBUPROFEN
     Route: 065
  45. PREDNISOLONE [Suspect]
     Active Substance: PREDNISOLONE
     Indication: Product used for unknown indication
  46. PREDNISOLONE [Suspect]
     Active Substance: PREDNISOLONE
     Route: 065
  47. PREDNISOLONE [Suspect]
     Active Substance: PREDNISOLONE
     Route: 065
  48. PREDNISOLONE [Suspect]
     Active Substance: PREDNISOLONE
  49. IBUPROFEN [Suspect]
     Active Substance: IBUPROFEN
     Indication: Product used for unknown indication
  50. IBUPROFEN [Suspect]
     Active Substance: IBUPROFEN
     Route: 065
  51. IBUPROFEN [Suspect]
     Active Substance: IBUPROFEN
     Route: 065
  52. IBUPROFEN [Suspect]
     Active Substance: IBUPROFEN
  53. IMPLANON [Suspect]
     Active Substance: ETONOGESTREL
     Indication: Contraception
  54. IMPLANON [Suspect]
     Active Substance: ETONOGESTREL
     Route: 065
  55. IMPLANON [Suspect]
     Active Substance: ETONOGESTREL
     Route: 065
  56. IMPLANON [Suspect]
     Active Substance: ETONOGESTREL
  57. AMITRIPTYLINE [Suspect]
     Active Substance: AMITRIPTYLINE
     Indication: Depression
  58. AMITRIPTYLINE [Suspect]
     Active Substance: AMITRIPTYLINE
     Route: 065
  59. AMITRIPTYLINE [Suspect]
     Active Substance: AMITRIPTYLINE
     Route: 065
  60. AMITRIPTYLINE [Suspect]
     Active Substance: AMITRIPTYLINE
  61. ALBUTEROL SULFATE [Suspect]
     Active Substance: ALBUTEROL SULFATE
     Indication: Product used for unknown indication
  62. ALBUTEROL SULFATE [Suspect]
     Active Substance: ALBUTEROL SULFATE
     Route: 065
  63. ALBUTEROL SULFATE [Suspect]
     Active Substance: ALBUTEROL SULFATE
     Route: 065
  64. ALBUTEROL SULFATE [Suspect]
     Active Substance: ALBUTEROL SULFATE
  65. PREDNISOLONE [Suspect]
     Active Substance: PREDNISOLONE
     Indication: Product used for unknown indication
     Route: 065
  66. PREDNISOLONE [Suspect]
     Active Substance: PREDNISOLONE
  67. PREDNISOLONE [Suspect]
     Active Substance: PREDNISOLONE
  68. PREDNISOLONE [Suspect]
     Active Substance: PREDNISOLONE
     Route: 065
  69. PREDNISOLONE [Suspect]
     Active Substance: PREDNISOLONE
     Route: 065
  70. PREDNISOLONE [Suspect]
     Active Substance: PREDNISOLONE
  71. PREDNISOLONE [Suspect]
     Active Substance: PREDNISOLONE
  72. PREDNISOLONE [Suspect]
     Active Substance: PREDNISOLONE
     Route: 065
  73. ESCITALOPRAM OXALATE [Suspect]
     Active Substance: ESCITALOPRAM OXALATE
     Indication: Product used for unknown indication
  74. ESCITALOPRAM OXALATE [Suspect]
     Active Substance: ESCITALOPRAM OXALATE
     Route: 065
  75. ESCITALOPRAM OXALATE [Suspect]
     Active Substance: ESCITALOPRAM OXALATE
     Route: 065
  76. ESCITALOPRAM OXALATE [Suspect]
     Active Substance: ESCITALOPRAM OXALATE
  77. METOPROLOL TARTRATE [Suspect]
     Active Substance: METOPROLOL TARTRATE
     Indication: Product used for unknown indication
  78. METOPROLOL TARTRATE [Suspect]
     Active Substance: METOPROLOL TARTRATE
     Route: 065
  79. METOPROLOL TARTRATE [Suspect]
     Active Substance: METOPROLOL TARTRATE
     Route: 065
  80. METOPROLOL TARTRATE [Suspect]
     Active Substance: METOPROLOL TARTRATE
  81. METOPROLOL TARTRATE [Suspect]
     Active Substance: METOPROLOL TARTRATE
     Indication: Product used for unknown indication
  82. METOPROLOL TARTRATE [Suspect]
     Active Substance: METOPROLOL TARTRATE
     Route: 065
  83. METOPROLOL TARTRATE [Suspect]
     Active Substance: METOPROLOL TARTRATE
     Route: 065
  84. METOPROLOL TARTRATE [Suspect]
     Active Substance: METOPROLOL TARTRATE
  85. ESCITALOPRAM OXALATE [Suspect]
     Active Substance: ESCITALOPRAM OXALATE
     Indication: Product used for unknown indication
  86. ESCITALOPRAM OXALATE [Suspect]
     Active Substance: ESCITALOPRAM OXALATE
     Route: 065
  87. ESCITALOPRAM OXALATE [Suspect]
     Active Substance: ESCITALOPRAM OXALATE
     Route: 065
  88. ESCITALOPRAM OXALATE [Suspect]
     Active Substance: ESCITALOPRAM OXALATE
  89. IBUPROFEN [Suspect]
     Active Substance: IBUPROFEN
     Indication: Product used for unknown indication
  90. IBUPROFEN [Suspect]
     Active Substance: IBUPROFEN
     Route: 065
  91. IBUPROFEN [Suspect]
     Active Substance: IBUPROFEN
     Route: 065
  92. IBUPROFEN [Suspect]
     Active Substance: IBUPROFEN
  93. GOLIMUMAB [Suspect]
     Active Substance: GOLIMUMAB
     Indication: Product used for unknown indication
     Route: 065
  94. GOLIMUMAB [Suspect]
     Active Substance: GOLIMUMAB
  95. GOLIMUMAB [Suspect]
     Active Substance: GOLIMUMAB
  96. GOLIMUMAB [Suspect]
     Active Substance: GOLIMUMAB
     Route: 065
  97. GOLIMUMAB [Suspect]
     Active Substance: GOLIMUMAB
     Route: 065
  98. GOLIMUMAB [Suspect]
     Active Substance: GOLIMUMAB
  99. GOLIMUMAB [Suspect]
     Active Substance: GOLIMUMAB
  100. GOLIMUMAB [Suspect]
     Active Substance: GOLIMUMAB
     Route: 065
  101. PREDNISOLONE [Suspect]
     Active Substance: PREDNISOLONE
     Indication: Product used for unknown indication
  102. PREDNISOLONE [Suspect]
     Active Substance: PREDNISOLONE
     Route: 065
  103. PREDNISOLONE [Suspect]
     Active Substance: PREDNISOLONE
     Route: 065
  104. PREDNISOLONE [Suspect]
     Active Substance: PREDNISOLONE
  105. ALBUTEROL [Suspect]
     Active Substance: ALBUTEROL
     Indication: Product used for unknown indication
  106. ALBUTEROL [Suspect]
     Active Substance: ALBUTEROL
     Route: 065
  107. ALBUTEROL [Suspect]
     Active Substance: ALBUTEROL
     Route: 065
  108. ALBUTEROL [Suspect]
     Active Substance: ALBUTEROL
  109. FLUTICASONE FUROATE\VILANTEROL TRIFENATATE [Suspect]
     Active Substance: FLUTICASONE FUROATE\VILANTEROL TRIFENATATE
     Indication: Product used for unknown indication
  110. FLUTICASONE FUROATE\VILANTEROL TRIFENATATE [Suspect]
     Active Substance: FLUTICASONE FUROATE\VILANTEROL TRIFENATATE
     Route: 065
  111. FLUTICASONE FUROATE\VILANTEROL TRIFENATATE [Suspect]
     Active Substance: FLUTICASONE FUROATE\VILANTEROL TRIFENATATE
     Route: 065
  112. FLUTICASONE FUROATE\VILANTEROL TRIFENATATE [Suspect]
     Active Substance: FLUTICASONE FUROATE\VILANTEROL TRIFENATATE
  113. IBUPROFEN [Suspect]
     Active Substance: IBUPROFEN
     Indication: Product used for unknown indication
  114. IBUPROFEN [Suspect]
     Active Substance: IBUPROFEN
     Route: 065
  115. IBUPROFEN [Suspect]
     Active Substance: IBUPROFEN
     Route: 065
  116. IBUPROFEN [Suspect]
     Active Substance: IBUPROFEN

REACTIONS (4)
  - Discomfort [Unknown]
  - Deep vein thrombosis [Unknown]
  - Muscular weakness [Unknown]
  - Myalgia [Unknown]

NARRATIVE: CASE EVENT DATE: 20190222
